FAERS Safety Report 17191212 (Version 1)
Quarter: 2019Q4

REPORT INFORMATION
  Report Type: Spontaneous
  Country: FR (occurrence: FR)
  Receive Date: 20191223
  Receipt Date: 20191223
  Transmission Date: 20200122
  Serious: Yes (Hospitalization)
  Sender: FDA-Public Use
  Company Number: FR-PFIZER INC-2019549393

PATIENT
  Age: 48 Year
  Sex: Male

DRUGS (2)
  1. IBUPROFEN. [Suspect]
     Active Substance: IBUPROFEN
     Indication: TOOTHACHE
     Dosage: 800 MG, DAILY
     Route: 048
     Dates: start: 20191003, end: 20191011
  2. DALACINE [Suspect]
     Active Substance: CLINDAMYCIN
     Indication: TOOTH INFECTION
     Dosage: 4 DF, DAILY
     Route: 048
     Dates: start: 20191003, end: 20191011

REACTIONS (1)
  - Stevens-Johnson syndrome [Recovering/Resolving]

NARRATIVE: CASE EVENT DATE: 20191011
